FAERS Safety Report 4405483-9 (Version None)
Quarter: 2004Q3

REPORT INFORMATION
  Report Type: 
  Country: None (occurrence: None)
  Receive Date: 20040723
  Receipt Date: 20030910
  Transmission Date: 20050211
  Serious: No
  Sender: FDA-Public Use
  Company Number: US-GLAXOSMITHKLINE-A0425333A

PATIENT
  Age: 75 Year
  Sex: Male

DRUGS (5)
  1. AVANDIA [Suspect]
     Dosage: 4MG PER DAY
     Route: 048
  2. GLUCOTROL [Concomitant]
  3. EPOGEN [Concomitant]
  4. NEULASTA [Concomitant]
  5. SAW PALMETTO [Concomitant]

REACTIONS (5)
  - DYSPNOEA [None]
  - FATIGUE [None]
  - HYPERGLYCAEMIA [None]
  - INSOMNIA [None]
  - WEIGHT INCREASED [None]
